FAERS Safety Report 5056488-9 (Version None)
Quarter: 2006Q3

REPORT INFORMATION
  Report Type: 
  Country: None (occurrence: None)
  Receive Date: 20060720
  Receipt Date: 20060711
  Transmission Date: 20061208
  Serious: Yes (Death)
  Sender: FDA-Public Use
  Company Number: DE-BRISTOL-MYERS SQUIBB COMPANY-13443312

PATIENT
  Sex: Female

DRUGS (6)
  1. ABILIFY [Suspect]
     Dosage: DOSE INCREASED TO 10 MG DAILY ON 29-JUN-2006.
     Dates: start: 20060626
  2. GLIANIMON [Concomitant]
     Dates: end: 20060628
  3. LAMICTAL [Concomitant]
  4. APONAL [Concomitant]
  5. NACL INFUSION [Concomitant]
     Route: 042
     Dates: start: 20060101
  6. TAVOR [Concomitant]

REACTIONS (1)
  - NEUROLEPTIC MALIGNANT SYNDROME [None]
